FAERS Safety Report 5888948-2 (Version None)
Quarter: 2008Q3

REPORT INFORMATION
  Report Type: 
  Country: None (occurrence: None)
  Receive Date: 20080917
  Receipt Date: 20080902
  Transmission Date: 20090109
  Serious: Yes (Hospitalization)
  Sender: FDA-Public Use
  Company Number: 8036974

PATIENT
  Age: 54 Year
  Sex: Female

DRUGS (1)
  1. PREDNISOLONE [Suspect]
     Indication: MYASTHENIA GRAVIS
     Dates: start: 19880701, end: 19960301

REACTIONS (2)
  - HAEMANGIOMA OF LIVER [None]
  - NEOPLASM PROGRESSION [None]
